FAERS Safety Report 9123633 (Version 1)
Quarter: 2013Q1

REPORT INFORMATION
  Report Type: Report from Study
  Country: ZA (occurrence: ZA)
  Receive Date: 20130227
  Receipt Date: 20130227
  Transmission Date: 20140127
  Serious: Yes (Hospitalization)
  Sender: FDA-Public Use
  Company Number: ZA-ROCHE-1193516

PATIENT
  Sex: Female

DRUGS (5)
  1. ACTEMRA [Suspect]
     Indication: RHEUMATOID ARTHRITIS
     Route: 042
     Dates: end: 20111026
  2. METHOTREXATE [Concomitant]
     Dosage: 15 MG/ML
     Route: 065
     Dates: start: 20021008, end: 2009
  3. SALAZOPYRINE [Concomitant]
     Route: 065
     Dates: start: 20091021
  4. CHLOROQUINE [Concomitant]
  5. MYOCRISIN [Concomitant]
     Route: 065
     Dates: start: 1990, end: 20021008

REACTIONS (1)
  - Knee arthroplasty [Unknown]
